FAERS Safety Report 10725860 (Version 2)
Quarter: 2015Q1

REPORT INFORMATION
  Report Type: Report from Study
  Country: NL (occurrence: NL)
  Receive Date: 20150121
  Receipt Date: 20150204
  Transmission Date: 20150721
  Serious: Yes (Other)
  Sender: FDA-Public Use
  Company Number: NL-BAYER-2015-005475

PATIENT
  Age: 55 Year
  Sex: Male

DRUGS (2)
  1. BETAFERON [Suspect]
     Active Substance: INTERFERON BETA-1B
     Indication: SECONDARY PROGRESSIVE MULTIPLE SCLEROSIS
     Dosage: 250 ?G, QOD
     Dates: start: 200611
  2. BETAFERON [Suspect]
     Active Substance: INTERFERON BETA-1B
     Indication: MULTIPLE SCLEROSIS

REACTIONS (4)
  - Rash [Not Recovered/Not Resolved]
  - Secondary progressive multiple sclerosis [Unknown]
  - Injection site induration [Unknown]
  - Eczema [Not Recovered/Not Resolved]

NARRATIVE: CASE EVENT DATE: 20140818
